FAERS Safety Report 5740168-8 (Version None)
Quarter: 2008Q2

REPORT INFORMATION
  Report Type: 
  Country: None (occurrence: None)
  Receive Date: 20080516
  Receipt Date: 20080506
  Transmission Date: 20081010
  Serious: Yes (Death, Hospitalization, Other)
  Sender: FDA-Public Use
  Company Number: US-ROCHE-559816

PATIENT
  Sex: Female
  Weight: 83.5 kg

DRUGS (3)
  1. XELODA [Suspect]
     Route: 048
     Dates: start: 20071127, end: 20071203
  2. XELODA [Suspect]
     Route: 048
     Dates: start: 20071211, end: 20071217
  3. UNSPECIFIED MEDICATIONS [Concomitant]

REACTIONS (6)
  - BREAST CANCER METASTATIC [None]
  - CARDIAC ARREST [None]
  - MENTAL STATUS CHANGES [None]
  - METASTASES TO CENTRAL NERVOUS SYSTEM [None]
  - PLEURAL EFFUSION [None]
  - RESPIRATORY FAILURE [None]
